FAERS Safety Report 23959665 (Version 4)
Quarter: 2024Q4

REPORT INFORMATION
  Report Type: Spontaneous
  Country: GB (occurrence: GB)
  Receive Date: 20240611
  Receipt Date: 20241113
  Transmission Date: 20250114
  Serious: Yes (Congenital Anomaly, Other)
  Sender: SANDOZ
  Company Number: GB-MLMSERVICE-20240517-PI059713-00270-2

PATIENT
  Sex: Female
  Weight: 1 kg

DRUGS (28)
  1. ACYCLOVIR [Suspect]
     Active Substance: ACYCLOVIR
     Indication: Prophylaxis
     Dosage: UNK
     Route: 065
  2. ACYCLOVIR [Suspect]
     Active Substance: ACYCLOVIR
     Route: 064
  3. ACYCLOVIR [Suspect]
     Active Substance: ACYCLOVIR
     Route: 064
  4. CEFUROXIME [Suspect]
     Active Substance: CEFUROXIME
     Indication: Product used for unknown indication
     Dosage: 1.5 GRAM
     Route: 042
  5. CEFUROXIME [Suspect]
     Active Substance: CEFUROXIME
     Dosage: 1.5 G
     Route: 064
  6. CEFUROXIME [Suspect]
     Active Substance: CEFUROXIME
     Dosage: 1.500G
     Route: 064
  7. CYCLOPHOSPHAMIDE [Suspect]
     Active Substance: CYCLOPHOSPHAMIDE
     Dosage: 1 G, TOTAL (ON DAY 3)
     Route: 065
  8. CYCLOPHOSPHAMIDE [Suspect]
     Active Substance: CYCLOPHOSPHAMIDE
     Indication: Anti-glomerular basement membrane disease
     Dosage: 1 GRAM, IN TOTAL(18  WEEK)
     Route: 065
  9. CYCLOPHOSPHAMIDE [Suspect]
     Active Substance: CYCLOPHOSPHAMIDE
     Dosage: UNK
     Route: 064
  10. IRON [Suspect]
     Active Substance: IRON
     Indication: Product used for unknown indication
     Dosage: UNK
     Route: 042
  11. IRON [Suspect]
     Active Substance: IRON
     Route: 064
  12. IRON [Suspect]
     Active Substance: IRON
     Route: 064
  13. METHYLPREDNISOLONE [Suspect]
     Active Substance: METHYLPREDNISOLONE
     Indication: Anti-glomerular basement membrane disease
     Dosage: PULSES 2ND(TRIMESTER)
     Route: 065
  14. PREDNISOLONE [Suspect]
     Active Substance: PREDNISOLONE
     Dosage: 2ND (TRIMESTER)
     Route: 065
  15. PREDNISOLONE [Suspect]
     Active Substance: PREDNISOLONE
     Indication: Anti-glomerular basement membrane disease
     Dosage: WEANING(TRIMESTER)
     Route: 048
  16. PREDNISOLONE [Suspect]
     Active Substance: PREDNISOLONE
     Dosage: 1 G
     Route: 065
  17. PREDNISOLONE [Suspect]
     Active Substance: PREDNISOLONE
     Dosage: UNK
     Route: 048
  18. RITUXIMAB [Suspect]
     Active Substance: RITUXIMAB
     Indication: Anti-glomerular basement membrane disease
     Dosage: 1 GRAM, IN TOTAL 2(TRIMESTER)
     Route: 065
  19. RITUXIMAB [Suspect]
     Active Substance: RITUXIMAB
     Dosage: UNK
     Route: 064
  20. TAZOBACTAM [Suspect]
     Active Substance: TAZOBACTAM
     Indication: Antibiotic therapy
     Dosage: UNK
     Route: 065
  21. TAZOBACTAM [Suspect]
     Active Substance: TAZOBACTAM
     Route: 064
  22. TAZOBACTAM [Suspect]
     Active Substance: TAZOBACTAM
     Route: 064
  23. VALGANCICLOVIR [Suspect]
     Active Substance: VALGANCICLOVIR
     Indication: Cytomegalovirus infection reactivation
     Dosage: UNK
     Route: 065
  24. VALGANCICLOVIR [Suspect]
     Active Substance: VALGANCICLOVIR
     Route: 064
  25. VALGANCICLOVIR [Suspect]
     Active Substance: VALGANCICLOVIR
     Route: 064
  26. OXYGEN [Concomitant]
     Active Substance: OXYGEN
     Indication: Product used for unknown indication
     Dosage: HIGH-FLOW
     Route: 065
  27. OXYGEN [Concomitant]
     Active Substance: OXYGEN
     Dosage: HIGH-FLOW
     Route: 064
  28. OXYGEN [Concomitant]
     Active Substance: OXYGEN
     Dosage: HIGH-FLOW
     Route: 064

REACTIONS (7)
  - Congenital cytomegalovirus infection [Unknown]
  - Deafness congenital [Unknown]
  - Premature baby [Unknown]
  - Deafness neurosensory [Recovered/Resolved]
  - Foetal growth restriction [Unknown]
  - Low birth weight baby [Unknown]
  - Foetal exposure during pregnancy [Unknown]
